FAERS Safety Report 8472870-1 (Version None)
Quarter: 2012Q2

REPORT INFORMATION
  Report Type: 
  Country: None (occurrence: None)
  Receive Date: 20120627
  Receipt Date: 20111122
  Transmission Date: 20120825
  Serious: No
  Sender: FDA-Public Use
  Company Number: US-MYLANLABS-2011S1024180

PATIENT
  Sex: Female

DRUGS (1)
  1. OMEPRAZOLE [Suspect]
     Indication: GASTROOESOPHAGEAL REFLUX DISEASE
     Route: 048
     Dates: start: 20110903, end: 20111111

REACTIONS (5)
  - FLATULENCE [None]
  - ABDOMINAL DISTENSION [None]
  - ERUCTATION [None]
  - ABDOMINAL DISCOMFORT [None]
  - ABDOMINAL TENDERNESS [None]
